FAERS Safety Report 21538615 (Version 2)
Quarter: 2023Q1

REPORT INFORMATION
  Report Type: Spontaneous
  Country: US (occurrence: US)
  Receive Date: 20221102
  Receipt Date: 20230129
  Transmission Date: 20230417
  Serious: Yes (Other)
  Sender: FDA-Public Use
  Company Number: US-BRISTOL-MYERS SQUIBB COMPANY-2022-129113

PATIENT
  Age: 40 Year
  Sex: Female

DRUGS (4)
  1. OPDIVO [Suspect]
     Active Substance: NIVOLUMAB
     Indication: Malignant melanoma
     Dosage: DOSE: OPDIVO 72 MG | YERVOY 215 MG, VIALS; FREQ :  EVERY 21 DAYS.
     Route: 042
     Dates: start: 20220728
  2. OPDIVO [Suspect]
     Active Substance: NIVOLUMAB
     Indication: Metastases to lung
  3. YERVOY [Suspect]
     Active Substance: IPILIMUMAB
     Indication: Malignant melanoma
     Dosage: DOSE: OPDIVO 72 MG | YERVOY 215 MG, VIALS;  FREQ :  EVERY 21 DAYS.
     Route: 042
     Dates: start: 20220728
  4. YERVOY [Suspect]
     Active Substance: IPILIMUMAB
     Indication: Metastases to lung

REACTIONS (1)
  - Malignant neoplasm progression [Unknown]
